FAERS Safety Report 9559047 (Version 2)
Quarter: 2013Q4

REPORT INFORMATION
  Report Type: Spontaneous
  Country: US (occurrence: US)
  Receive Date: 20130927
  Receipt Date: 20131115
  Transmission Date: 20140711
  Serious: Yes (Hospitalization)
  Sender: FDA-Public Use
  Company Number: US-BIOGENIDEC-2013BI091665

PATIENT
  Age: 44 Year
  Sex: Female
  Weight: 54 kg

DRUGS (21)
  1. TYSABRI [Suspect]
     Indication: MULTIPLE SCLEROSIS
     Route: 042
     Dates: start: 20101223, end: 20110707
  2. MIRENA [Concomitant]
  3. AMPYRA [Concomitant]
  4. BONIVA [Concomitant]
  5. TIZANIDINE [Concomitant]
  6. VITAMIN D3 [Concomitant]
  7. DILAUDID [Concomitant]
  8. MELOXICAM [Concomitant]
  9. AMITIZA [Concomitant]
  10. CLONAZEPAM [Concomitant]
  11. SOMA [Concomitant]
  12. OXYBUTYNIN [Concomitant]
  13. WELLBUTRIN XL [Concomitant]
  14. MEXILETINE [Concomitant]
  15. TEGRETOL [Concomitant]
  16. BACLOFEN [Concomitant]
  17. OXYCODONE [Concomitant]
  18. OXYCONTIN [Concomitant]
  19. GABAPENTIN [Concomitant]
  20. HIPREX [Concomitant]
  21. VITAMIN B12 [Concomitant]

REACTIONS (1)
  - Multiple sclerosis relapse [Not Recovered/Not Resolved]
